FAERS Safety Report 15248319 (Version 3)
Quarter: 2018Q4

REPORT INFORMATION
  Report Type: Spontaneous
  Country: US (occurrence: US)
  Receive Date: 20180807
  Receipt Date: 20181108
  Transmission Date: 20190204
  Serious: Yes (Other)
  Sender: FDA-Public Use
  Company Number: US-SA-2018SA208133

PATIENT
  Age: 50 Year
  Sex: Female

DRUGS (2)
  1. AUBAGIO [Suspect]
     Active Substance: TERIFLUNOMIDE
     Indication: RELAPSING-REMITTING MULTIPLE SCLEROSIS
  2. AUBAGIO [Suspect]
     Active Substance: TERIFLUNOMIDE
     Indication: MULTIPLE SCLEROSIS
     Dosage: 14 MG
     Route: 048
     Dates: start: 20180709, end: 20180723

REACTIONS (7)
  - Multiple sclerosis [Unknown]
  - Vision blurred [Unknown]
  - Visual impairment [Unknown]
  - Gingivitis [Recovered/Resolved]
  - Gingival swelling [Unknown]
  - Device expulsion [Unknown]
  - Ataxia [Unknown]
